FAERS Safety Report 16364118 (Version 1)
Quarter: 2019Q2

REPORT INFORMATION
  Report Type: Report from Study
  Country: US (occurrence: US)
  Receive Date: 20190528
  Receipt Date: 20190528
  Transmission Date: 20190711
  Serious: Yes (Other)
  Sender: FDA-Public Use
  Company Number: US-SHIRE-US201916566

PATIENT
  Sex: Female

DRUGS (1)
  1. HUMAN NORMAL IMMUNOGLOBULIN; LIQUID [Suspect]
     Active Substance: HUMAN IMMUNOGLOBULIN G
     Indication: PRIMARY IMMUNODEFICIENCY SYNDROME
     Dosage: 10 GRAM, 1X/WEEK
     Route: 058

REACTIONS (8)
  - Urinary tract infection [Unknown]
  - Pain [Unknown]
  - Gastrointestinal disorder [Unknown]
  - Chills [Unknown]
  - Blister [Unknown]
  - Joint swelling [Unknown]
  - Headache [Unknown]
  - Nausea [Unknown]
